FAERS Safety Report 5926028-8 (Version None)
Quarter: 2008Q3

REPORT INFORMATION
  Report Type: 
  Country: None (occurrence: None)
  Receive Date: 20080924
  Receipt Date: 20080626
  Transmission Date: 20090109
  Serious: No
  Sender: FDA-Public Use
  Company Number: US-WYE-H04760808

PATIENT
  Age: 80 Year
  Sex: Male

DRUGS (1)
  1. TORISEL [Suspect]
     Dosage: INTRAVENOUS
     Route: 042
     Dates: start: 20080401, end: 20080601

REACTIONS (2)
  - HYPOPHAGIA [None]
  - MOUTH ULCERATION [None]
